FAERS Safety Report 6038208-4 (Version None)
Quarter: 2009Q1

REPORT INFORMATION
  Report Type: 
  Country: None (occurrence: None)
  Receive Date: 20090113
  Receipt Date: 20090113
  Transmission Date: 20090719
  Serious: No
  Sender: FDA-Public Use
  Company Number: None

PATIENT
  Age: 56 Year
  Sex: Male
  Weight: 103.4201 kg

DRUGS (2)
  1. BUSPIRONE HCL [Suspect]
     Indication: ANXIETY
     Dosage: 1/2 TABLET -15MG- TWICE A DAY PO
     Route: 048
     Dates: start: 20081203
  2. BUSPIRONE HCL [Suspect]
     Indication: DEPRESSION
     Dosage: 1/2 TABLET -15MG- TWICE A DAY PO
     Route: 048
     Dates: start: 20081203

REACTIONS (1)
  - AFFECTIVE DISORDER [None]
